FAERS Safety Report 22613869 (Version 1)
Quarter: 2023Q2

REPORT INFORMATION
  Report Type: Spontaneous
  Country: US (occurrence: US)
  Receive Date: 20230619
  Receipt Date: 20230619
  Transmission Date: 20230721
  Serious: No
  Sender: FDA-Public Use
  Company Number: US-drreddys-SPO/USA/23/0165418

PATIENT
  Sex: Female

DRUGS (5)
  1. LORAZEPAM [Suspect]
     Active Substance: LORAZEPAM
     Indication: Catatonia
  2. LORAZEPAM [Suspect]
     Active Substance: LORAZEPAM
     Dosage: RAMPING UP THE DOSE
  3. LURASIDONE [Concomitant]
     Active Substance: LURASIDONE
     Indication: Bipolar disorder
  4. LITHIUM [Concomitant]
     Active Substance: LITHIUM
     Indication: Bipolar disorder
  5. PRAZOSIN [Concomitant]
     Active Substance: PRAZOSIN
     Indication: Post-traumatic stress disorder

REACTIONS (5)
  - Condition aggravated [Recovered/Resolved]
  - Drug intolerance [Unknown]
  - Derealisation [Recovered/Resolved]
  - Hypotension [Unknown]
  - Product use in unapproved indication [Unknown]
